FAERS Safety Report 22918144 (Version 2)
Quarter: 2023Q4

REPORT INFORMATION
  Report Type: Spontaneous
  Country: FR (occurrence: FR)
  Receive Date: 20230907
  Receipt Date: 20231003
  Transmission Date: 20240110
  Serious: Yes (Other)
  Sender: FDA-Public Use
  Company Number: FR-SUN PHARMACEUTICAL INDUSTRIES LTD-2023RR-406988

PATIENT
  Age: 46 Year
  Sex: Female
  Weight: 125 kg

DRUGS (4)
  1. ZYPREXA [Interacting]
     Active Substance: OLANZAPINE
     Indication: Bipolar disorder
     Dosage: UNK
     Route: 065
  2. DEPAKOTE [Interacting]
     Active Substance: DIVALPROEX SODIUM
     Indication: Bipolar disorder
     Dosage: UNK
     Route: 065
  3. TERALITHE [Interacting]
     Active Substance: LITHIUM CARBONATE
     Indication: Bipolar disorder
     Dosage: UNK
     Route: 065
  4. PROPOFOL LIPURO [Interacting]
     Active Substance: PROPOFOL
     Indication: Anaesthesia
     Dosage: AVERAGE DOSE 1.16 MG/KG
     Route: 065

REACTIONS (3)
  - Post-traumatic stress disorder [Unknown]
  - Drug interaction [Unknown]
  - Drug resistance [Unknown]
